FAERS Safety Report 6261451-6 (Version None)
Quarter: 2009Q3

REPORT INFORMATION
  Report Type: 
  Country: None (occurrence: None)
  Receive Date: 20090709
  Receipt Date: 20090701
  Transmission Date: 20100115
  Serious: Yes (Hospitalization)
  Sender: FDA-Public Use
  Company Number: US-ASTRAZENECA-2009UW18297

PATIENT
  Age: 80 Year
  Sex: Male

DRUGS (7)
  1. CANDESARTAN CILEXETIL [Suspect]
     Route: 048
  2. APIXABAN [Suspect]
     Indication: THROMBOSIS PROPHYLAXIS
     Route: 048
     Dates: start: 20081118
  3. WARFARIN SODIUM [Suspect]
     Indication: THROMBOSIS PROPHYLAXIS
     Route: 048
     Dates: start: 20081118
  4. ATORVASTATIN CALCIUM [Concomitant]
  5. ZANIDIP [Concomitant]
  6. CARBAMAZEPINE [Concomitant]
  7. DIGOXIN [Concomitant]

REACTIONS (1)
  - ORTHOSTATIC HYPOTENSION [None]
